FAERS Safety Report 19156780 (Version 5)
Quarter: 2021Q2

REPORT INFORMATION
  Report Type: Report from Study
  Country: CR (occurrence: CR)
  Receive Date: 20210420
  Receipt Date: 20210429
  Transmission Date: 20210717
  Serious: Yes (Death, Hospitalization)
  Sender: FDA-Public Use
  Company Number: CR-BIOGEN-2021BI01001737

PATIENT
  Sex: Male

DRUGS (6)
  1. AVONEX [Suspect]
     Active Substance: INTERFERON BETA-1A
     Route: 030
     Dates: start: 20210331, end: 20210412
  2. AVONEX [Suspect]
     Active Substance: INTERFERON BETA-1A
  3. DILANTIN [Concomitant]
     Active Substance: PHENYTOIN
     Indication: SEIZURE
     Route: 065
  4. AVONEX [Suspect]
     Active Substance: INTERFERON BETA-1A
  5. EPIVAL [Concomitant]
     Active Substance: DIVALPROEX SODIUM
     Indication: PAIN
     Route: 065
  6. AVONEX [Suspect]
     Active Substance: INTERFERON BETA-1A
     Indication: RELAPSING MULTIPLE SCLEROSIS
     Route: 030
     Dates: start: 20210331

REACTIONS (7)
  - Urinary incontinence [Not Recovered/Not Resolved]
  - General physical health deterioration [Not Recovered/Not Resolved]
  - Dysphagia [Not Recovered/Not Resolved]
  - Bacterial sepsis [Fatal]
  - Anal incontinence [Not Recovered/Not Resolved]
  - Respiratory distress [Not Recovered/Not Resolved]
  - Gait inability [Not Recovered/Not Resolved]
